FAERS Safety Report 7904275-3 (Version None)
Quarter: 2011Q4

REPORT INFORMATION
  Report Type: 
  Country: None (occurrence: None)
  Receive Date: 20111109
  Receipt Date: 20111103
  Transmission Date: 20120403
  Serious: Yes (Hospitalization, Disabling, Other)
  Sender: FDA-Public Use
  Company Number: US-ABBOTT-11P-163-0871895-00

PATIENT
  Sex: Female
  Weight: 59.02 kg

DRUGS (5)
  1. HUMIRA [Suspect]
     Indication: IRITIS
     Route: 058
     Dates: start: 20110101
  2. CALCIUM [Concomitant]
     Indication: MINERAL SUPPLEMENTATION
  3. HUMIRA [Suspect]
     Indication: ANKYLOSING SPONDYLITIS
     Route: 058
     Dates: start: 20050101, end: 20070201
  4. MULTIPLE VITAMIN [Concomitant]
     Indication: PRODUCT USED FOR UNKNOWN INDICATION
  5. ASCORBIC ACID [Concomitant]
     Indication: VITAMIN SUPPLEMENTATION

REACTIONS (19)
  - MONOPARESIS [None]
  - CEREBROVASCULAR ACCIDENT [None]
  - MALAISE [None]
  - CARDIAC VALVE VEGETATION [None]
  - PULMONARY EMBOLISM [None]
  - HEMIPARESIS [None]
  - SEPTIC EMBOLUS [None]
  - DEPRESSION [None]
  - VISUAL IMPAIRMENT [None]
  - THERAPEUTIC RESPONSE UNEXPECTED [None]
  - ENDOCARDITIS [None]
  - PERIPHERAL EMBOLISM [None]
  - INFLUENZA LIKE ILLNESS [None]
  - IRITIS [None]
  - SEPSIS [None]
  - STAPHYLOCOCCAL INFECTION [None]
  - RETINAL ARTERY EMBOLISM [None]
  - UNRESPONSIVE TO STIMULI [None]
  - GAIT DISTURBANCE [None]
